FAERS Safety Report 5372233-1 (Version None)
Quarter: 2007Q2

REPORT INFORMATION
  Report Type: 
  Country: None (occurrence: None)
  Receive Date: 20070618
  Receipt Date: 20070515
  Transmission Date: 20071010
  Serious: Yes (Other)
  Sender: FDA-Public Use
  Company Number: 07-084

PATIENT
  Age: 76 Year
  Sex: Male
  Weight: 97.5234 kg

DRUGS (2)
  1. ALEVE [Suspect]
     Indication: ARTHRALGIA
     Dosage: 440 MG, DAILY, ORAL
     Route: 047
     Dates: start: 20070506
  2. HIGH BLOOD PRESSURE MEDICATION [Concomitant]

REACTIONS (1)
  - RECTAL HAEMORRHAGE [None]
